FAERS Safety Report 5907478-2 (Version None)
Quarter: 2008Q4

REPORT INFORMATION
  Report Type: 
  Country: None (occurrence: None)
  Receive Date: 20081003
  Receipt Date: 20080923
  Transmission Date: 20090506
  Serious: Yes (Other)
  Sender: FDA-Public Use
  Company Number: B0539808A

PATIENT
  Age: 12 Year
  Sex: Female

DRUGS (3)
  1. ACYCLOVIR [Suspect]
     Dosage: 60MGKH PER DAY
     Route: 042
  2. CEFOTAXIME SODIUM [Concomitant]
     Indication: PNEUMONIA
     Dosage: 150MGK PER DAY
     Route: 042
  3. FLUIDS [Concomitant]
     Route: 042

REACTIONS (4)
  - BLOOD CREATININE INCREASED [None]
  - BLOOD UREA INCREASED [None]
  - RENAL FAILURE ACUTE [None]
  - SYSTOLIC HYPERTENSION [None]
